FAERS Safety Report 22007683 (Version 1)
Quarter: 2023Q1

REPORT INFORMATION
  Report Type: Spontaneous
  Country: IT (occurrence: IT)
  Receive Date: 20230218
  Receipt Date: 20230218
  Transmission Date: 20230417
  Serious: Yes (Hospitalization, Other)
  Sender: FDA-Public Use
  Company Number: None

PATIENT
  Age: 29 Year
  Sex: Female

DRUGS (3)
  1. PANTOPRAZOLE SODIUM [Suspect]
     Active Substance: PANTOPRAZOLE SODIUM
     Indication: Gastritis
     Dosage: 1 DOSAGE FORM (DOSAGGIO: 1UNITA DI MISURA: UNITS POSOLOGICA FREQUENZA SOMMINISTRAZIONE: TOTALE VIA S
     Route: 048
     Dates: start: 20220924, end: 20220924
  2. LEVOTHYROXINE SODIUM [Concomitant]
     Active Substance: LEVOTHYROXINE SODIUM
     Indication: Hypothyroidism
     Dosage: 100 UG (DOSAGGIO: 100UNITA DI MISURA: MICROGRAMMI VIA SOMMINISTRAZIONE: ORALE)
     Route: 048
  3. COUMADIN [Concomitant]
     Active Substance: WARFARIN SODIUM
     Indication: Cerebral venous thrombosis
     Dosage: 1 DOSAGE FORM (DOSAGGIO: 1UNITA DI MISURA: UNITA POSOLOGICA VIA SOMMINISTRAZIONE: ORALE)
     Route: 048
     Dates: start: 20210901

REACTIONS (3)
  - Lip oedema [Recovering/Resolving]
  - Rash pruritic [Recovering/Resolving]
  - Drug hypersensitivity [Recovering/Resolving]

NARRATIVE: CASE EVENT DATE: 20220924
